FAERS Safety Report 9733405 (Version 1)
Quarter: 2013Q4

REPORT INFORMATION
  Report Type: Spontaneous
  Country: DK (occurrence: DK)
  Receive Date: 20131205
  Receipt Date: 20131205
  Transmission Date: 20140711
  Serious: Yes (Other)
  Sender: FDA-Public Use
  Company Number: DK-ACTAVIS-2013-22209

PATIENT
  Age: 31 Year
  Sex: Female
  Weight: 49 kg

DRUGS (1)
  1. CETIRIZIN ACTAVIS [Suspect]
     Indication: MULTIPLE ALLERGIES
     Dosage: 10 MG, DAILY
     Route: 065
     Dates: start: 2010, end: 20130720

REACTIONS (1)
  - Pruritus generalised [Not Recovered/Not Resolved]
